FAERS Safety Report 9920443 (Version 1)
Quarter: 2014Q1

REPORT INFORMATION
  Report Type: Report from Study
  Country: US (occurrence: US)
  Receive Date: 20140224
  Receipt Date: 20140224
  Transmission Date: 20141002
  Serious: Yes (Life-Threatening, Hospitalization)
  Sender: FDA-Public Use
  Company Number: US-ABBVIE-14P-163-1203666-00

PATIENT
  Sex: Female

DRUGS (3)
  1. HUMIRA [Suspect]
     Indication: CROHN^S DISEASE
     Dosage: DAY 1
     Route: 058
     Dates: start: 20140204, end: 20140204
  2. HUMIRA [Suspect]
     Dosage: DAY 15
     Route: 058
  3. MULTIVITAMINS [Concomitant]
     Indication: PRODUCT USED FOR UNKNOWN INDICATION

REACTIONS (6)
  - Dizziness [Not Recovered/Not Resolved]
  - Coronary artery occlusion [Unknown]
  - Visual impairment [Unknown]
  - Nausea [Unknown]
  - Cardiac arrest [Unknown]
  - Urinary tract infection [Unknown]
